FAERS Safety Report 6531521-3 (Version None)
Quarter: 2010Q1

REPORT INFORMATION
  Report Type: 
  Country: None (occurrence: None)
  Receive Date: 20100108
  Receipt Date: 20091230
  Transmission Date: 20100710
  Serious: Yes (Other)
  Sender: FDA-Public Use
  Company Number: US-SANOFI-AVENTIS-2010SA000379

PATIENT
  Age: 82 Year
  Sex: Male

DRUGS (10)
  1. LANTUS [Suspect]
     Dosage: INCREASING DOSE BY 2 UNITS PER DAY, ON 80 UNITS QD AS OF 30DEC09
     Route: 058
     Dates: start: 20090101
  2. PLAVIX [Suspect]
     Route: 048
     Dates: start: 20090301
  3. ASPIRIN [Concomitant]
     Route: 048
     Dates: start: 20090301
  4. ASPIRIN [Concomitant]
     Route: 048
  5. CARVEDILOL [Concomitant]
  6. LISINOPRIL [Concomitant]
  7. PRAVASTATIN [Concomitant]
  8. VITAMINS [Concomitant]
  9. VITAMIN D [Concomitant]
  10. COENZYME Q10 [Concomitant]
     Dates: start: 20090101

REACTIONS (3)
  - ANGINA PECTORIS [None]
  - DIABETES MELLITUS INADEQUATE CONTROL [None]
  - DIZZINESS [None]
